FAERS Safety Report 22960652 (Version 2)
Quarter: 2024Q3

REPORT INFORMATION
  Report Type: Spontaneous
  Country: US (occurrence: US)
  Receive Date: 20230920
  Receipt Date: 20240917
  Transmission Date: 20241016
  Serious: No
  Sender: SAREPTA THERAPEUTICS
  Company Number: US-SAREPTA THERAPEUTICS INC.-SRP2023-003420

PATIENT
  Age: 22 Year
  Sex: Male
  Weight: 65 kg

DRUGS (1)
  1. VYONDYS 53 [Suspect]
     Active Substance: GOLODIRSEN
     Indication: Muscular dystrophy
     Dosage: 1950 MILLIGRAM, WEEKLY
     Route: 042
     Dates: start: 202208

REACTIONS (4)
  - Infusion site extravasation [Recovered/Resolved]
  - Vein rupture [Recovered/Resolved]
  - Poor venous access [Unknown]
  - Product dose omission issue [Unknown]

NARRATIVE: CASE EVENT DATE: 20230527
